FAERS Safety Report 4393571-5 (Version None)
Quarter: 2004Q3

REPORT INFORMATION
  Report Type: 
  Country: None (occurrence: None)
  Receive Date: 20040701
  Receipt Date: 20040618
  Transmission Date: 20050211
  Serious: Yes (Hospitalization)
  Sender: FDA-Public Use
  Company Number: 04P-144-0264301-00

PATIENT
  Age: 20 Year
  Sex: Female

DRUGS (1)
  1. DEPAKENE [Suspect]
     Dosage: 1 IN 1 D, ORAL
     Route: 048
     Dates: start: 19930101

REACTIONS (3)
  - DYSGEUSIA [None]
  - EPILEPSY [None]
  - PHARMACEUTICAL PRODUCT COMPLAINT [None]
